FAERS Safety Report 5541457-2 (Version None)
Quarter: 2007Q4

REPORT INFORMATION
  Report Type: 
  Country: None (occurrence: None)
  Receive Date: 20071210
  Receipt Date: 20071130
  Transmission Date: 20080405
  Serious: Yes (Other)
  Sender: FDA-Public Use
  Company Number: JP-JNJFOC-20071200818

PATIENT
  Age: 83 Year
  Sex: Female

DRUGS (2)
  1. DUROTEP [Suspect]
     Indication: CANCER PAIN
     Route: 062
  2. ANTINEOPLASTIC AGENTS [Concomitant]
     Route: 065

REACTIONS (2)
  - DELIRIUM [None]
  - DYSPHAGIA [None]
